FAERS Safety Report 25147499 (Version 1)
Quarter: 2025Q2

REPORT INFORMATION
  Report Type: Spontaneous
  Country: CA (occurrence: CA)
  Receive Date: 20250402
  Receipt Date: 20250402
  Transmission Date: 20250717
  Serious: Yes (Hospitalization, Other)
  Sender: NOVO NORDISK
  Company Number: CA-NOVOPROD-1354114

PATIENT
  Age: 45 Year
  Sex: Female
  Weight: 77.11 kg

DRUGS (6)
  1. OZEMPIC [Suspect]
     Active Substance: SEMAGLUTIDE
     Indication: Weight control
     Dates: start: 2022
  2. OZEMPIC [Suspect]
     Active Substance: SEMAGLUTIDE
     Dates: start: 20230203
  3. OZEMPIC [Suspect]
     Active Substance: SEMAGLUTIDE
     Dosage: 1 MG, QW
     Dates: start: 20230220, end: 202303
  4. OZEMPIC [Suspect]
     Active Substance: SEMAGLUTIDE
     Dates: start: 202208
  5. OZEMPIC [Suspect]
     Active Substance: SEMAGLUTIDE
     Dates: start: 202402
  6. OZEMPIC [Suspect]
     Active Substance: SEMAGLUTIDE
     Dates: end: 202303

REACTIONS (10)
  - Impaired gastric emptying [Recovered/Resolved]
  - Impaired gastric emptying [Unknown]
  - Dyspepsia [Recovered/Resolved]
  - Chest pain [Recovered/Resolved]
  - Glycosylated haemoglobin increased [Recovered/Resolved]
  - Helicobacter infection [Unknown]
  - Glucose tolerance impaired [Unknown]
  - Gastrooesophageal reflux disease [Recovered/Resolved]
  - Blood glucose increased [Unknown]
  - Off label use [Unknown]

NARRATIVE: CASE EVENT DATE: 20220101
